FAERS Safety Report 16263547 (Version 2)
Quarter: 2019Q2

REPORT INFORMATION
  Report Type: Spontaneous
  Country: RU (occurrence: RU)
  Receive Date: 20190502
  Receipt Date: 20190515
  Transmission Date: 20190711
  Serious: Yes (Other)
  Sender: FDA-Public Use
  Company Number: RU-TEVA-2019-RU-1043636

PATIENT
  Age: 58 Year
  Sex: Male

DRUGS (11)
  1. BISOPROLOL [Concomitant]
     Active Substance: BISOPROLOL
     Indication: CARDIAC FAILURE CHRONIC
     Dosage: 5 TO 10MG
     Route: 065
     Dates: start: 201607
  2. ROSUVASTATIN. [Concomitant]
     Active Substance: ROSUVASTATIN
     Route: 065
     Dates: start: 201607
  3. EPLERENONE. [Concomitant]
     Active Substance: EPLERENONE
     Indication: CARDIAC FAILURE CHRONIC
     Dosage: 25 TO 50MG
     Route: 065
     Dates: start: 201607
  4. RAMIPRIL. [Concomitant]
     Active Substance: RAMIPRIL
     Indication: CARDIAC FAILURE CHRONIC
     Dosage: 5 TO 10MG
     Route: 065
     Dates: start: 201607
  5. RABEPRAZOLE [Concomitant]
     Active Substance: RABEPRAZOLE
     Route: 065
     Dates: start: 201611
  6. CLOPIDOGREL [Concomitant]
     Active Substance: CLOPIDOGREL BISULFATE
     Indication: CARDIAC FAILURE CHRONIC
     Route: 065
     Dates: start: 201607
  7. MELOXICAM. [Suspect]
     Active Substance: MELOXICAM
     Indication: OSTEOCHONDROSIS
     Dosage: FOR 10 DAYS; CONTINUED TO INDEPENDENTLY TAKE MELOXICAM PERIODICALLY
     Route: 065
     Dates: start: 2017
  8. ENOXAPARIN [Concomitant]
     Active Substance: ENOXAPARIN
     Route: 065
     Dates: start: 201611
  9. KETOPROFEN. [Suspect]
     Active Substance: KETOPROFEN
     Indication: OSTEOCHONDROSIS
     Route: 030
     Dates: start: 201706
  10. MELOXICAM. [Suspect]
     Active Substance: MELOXICAM
     Indication: OSTEOCHONDROSIS
     Route: 030
     Dates: start: 201706
  11. ASPIRIN. [Suspect]
     Active Substance: ASPIRIN
     Indication: CARDIAC FAILURE CHRONIC
     Route: 065
     Dates: start: 201607

REACTIONS (1)
  - Cardiac failure chronic [Recovering/Resolving]

NARRATIVE: CASE EVENT DATE: 20171016
